FAERS Safety Report 17476359 (Version 1)
Quarter: 2020Q1

REPORT INFORMATION
  Report Type: Report from Study
  Country: BR (occurrence: BR)
  Receive Date: 20200228
  Receipt Date: 20200228
  Transmission Date: 20200409
  Serious: Yes (Other)
  Sender: FDA-Public Use
  Company Number: BR-JNJFOC-20190923832

PATIENT
  Sex: Male
  Weight: 112 kg

DRUGS (1)
  1. STELARA [Suspect]
     Active Substance: USTEKINUMAB
     Indication: PSORIASIS
     Dosage: 45 MG- 2 VIALS
     Route: 058
     Dates: start: 20170310

REACTIONS (4)
  - Blindness unilateral [Unknown]
  - Back pain [Unknown]
  - Peripheral swelling [Unknown]
  - Psoriasis [Not Recovered/Not Resolved]
